FAERS Safety Report 24894783 (Version 1)
Quarter: 2025Q1

REPORT INFORMATION
  Report Type: Spontaneous
  Country: US (occurrence: None)
  Receive Date: 20250127
  Receipt Date: 20250127
  Transmission Date: 20250409
  Serious: Yes (Other)
  Sender: FDA-CTU
  Company Number: None

PATIENT
  Age: 26 Year
  Sex: Female
  Weight: 74.25 kg

DRUGS (10)
  1. AIMOVIG [Suspect]
     Active Substance: ERENUMAB-AOOE
     Indication: Migraine prophylaxis
     Route: 058
     Dates: start: 20250102
  2. FLUOXETINE [Concomitant]
     Active Substance: FLUOXETINE HYDROCHLORIDE
  3. MIRENA [Concomitant]
     Active Substance: LEVONORGESTREL
  4. UBRELVY [Concomitant]
     Active Substance: UBROGEPANT
  5. CLINDAMYCIN [Concomitant]
     Active Substance: CLINDAMYCIN
  6. VITAMIN B12 [Concomitant]
     Active Substance: CYANOCOBALAMIN
  7. VITAMIN D3 [Concomitant]
     Active Substance: CHOLECALCIFEROL
  8. k2 gummies [Concomitant]
  9. biotin gummies [Concomitant]
  10. ADAPALENE [Concomitant]
     Active Substance: ADAPALENE

REACTIONS (2)
  - Muscle spasms [None]
  - Ligament sprain [None]

NARRATIVE: CASE EVENT DATE: 20250102
